FAERS Safety Report 16728710 (Version 2)
Quarter: 2019Q3

REPORT INFORMATION
  Report Type: Spontaneous
  Country: CN (occurrence: CN)
  Receive Date: 20190822
  Receipt Date: 20190927
  Transmission Date: 20191005
  Serious: No
  Sender: FDA-Public Use
  Company Number: CN-BEH-2019105482

PATIENT

DRUGS (2)
  1. SALINE [SODIUM CHLORIDE] [Concomitant]
     Active Substance: SODIUM CHLORIDE
     Indication: BLOOD VOLUME EXPANSION
     Route: 065
  2. ALBURX [Suspect]
     Active Substance: ALBUMIN HUMAN
     Indication: BLOOD VOLUME EXPANSION
     Route: 065

REACTIONS (2)
  - No adverse event [Unknown]
  - Product preparation error [Unknown]
